FAERS Safety Report 14505040 (Version 1)
Quarter: 2018Q1

REPORT INFORMATION
  Report Type: Spontaneous
  Country: US (occurrence: US)
  Receive Date: 20180208
  Receipt Date: 20180208
  Transmission Date: 20180509
  Serious: No
  Sender: FDA-Public Use
  Company Number: US-B.I. PHARMACEUTICALS,INC./RIDGEFIELD-2018-BI-006491

PATIENT
  Age: 85 Year
  Sex: Female

DRUGS (1)
  1. COMBIVENT [Suspect]
     Active Substance: ALBUTEROL SULFATE\IPRATROPIUM BROMIDE
     Indication: REACTIVE AIRWAYS DYSFUNCTION SYNDROME
     Dosage: AS NEEDED;F STRE:20MCG/100MCG;ADMINISTRATION CORRECT:YES ACTION TAKEN WITH PRODUCT: DOSE NOT CHANGED
     Route: 048
     Dates: start: 2011

REACTIONS (2)
  - Pneumonia [Recovered/Resolved]
  - Off label use [Unknown]

NARRATIVE: CASE EVENT DATE: 20171227
